FAERS Safety Report 16760052 (Version 3)
Quarter: 2019Q3

REPORT INFORMATION
  Report Type: Spontaneous
  Country: US (occurrence: US)
  Receive Date: 20190830
  Receipt Date: 20190930
  Transmission Date: 20191005
  Serious: No
  Sender: FDA-Public Use
  Company Number: US-PFIZER INC-2019370728

PATIENT
  Age: 58 Year
  Sex: Female

DRUGS (2)
  1. RELPAX [Suspect]
     Active Substance: ELETRIPTAN HYDROBROMIDE
     Indication: MIGRAINE
     Dosage: UNK
  2. RELPAX [Suspect]
     Active Substance: ELETRIPTAN HYDROBROMIDE
     Dosage: UNK

REACTIONS (5)
  - Abdominal pain upper [Unknown]
  - Recalled product administered [Unknown]
  - Fatigue [Unknown]
  - Drug ineffective [Unknown]
  - Immune system disorder [Unknown]
